FAERS Safety Report 5317091-6 (Version None)
Quarter: 2007Q2

REPORT INFORMATION
  Report Type: 
  Country: None (occurrence: None)
  Receive Date: 20070504
  Receipt Date: 20070427
  Transmission Date: 20071010
  Serious: Yes (Death, Hospitalization)
  Sender: FDA-Public Use
  Company Number: DE-ROCHE-430075

PATIENT
  Age: 56 Year
  Sex: Male

DRUGS (17)
  1. DACLIZUMAB [Suspect]
     Route: 042
     Dates: start: 20051107, end: 20051107
  2. DACLIZUMAB [Suspect]
     Route: 042
     Dates: start: 20051114, end: 20051114
  3. MYCOPHENOLATE MOFETIL [Suspect]
     Route: 048
     Dates: start: 20051112, end: 20051114
  4. MYCOPHENOLATE MOFETIL [Suspect]
     Route: 048
     Dates: start: 20051115, end: 20051116
  5. MYCOPHENOLATE MOFETIL [Suspect]
     Route: 042
     Dates: start: 20051107, end: 20051110
  6. MYCOPHENOLATE MOFETIL [Suspect]
     Route: 042
     Dates: start: 20051111, end: 20051111
  7. TACROLIMUS [Suspect]
     Dosage: DOSE ADJUSTED TO REACH PRE-DEFINED TARGET LEVELS
     Route: 048
     Dates: start: 20051111
  8. PREDNISOLONE [Suspect]
     Dosage: DOSE TAPERED ACCORDING TO LOCAL PROTOCOL
     Route: 065
     Dates: start: 20051107, end: 20051115
  9. PREDNISOLONE [Suspect]
     Dosage: DOSE TAPERED ACCORDING TO LOCAL PROTOCOL
     Route: 065
     Dates: start: 20051117, end: 20051212
  10. PREDNISOLONE [Suspect]
     Dosage: TREATMENT OF REJECTION
     Route: 065
     Dates: start: 20051213, end: 20051215
  11. PREDNISOLONE [Suspect]
     Dosage: DOSE TAPERED ACCORDING TO LOCAL PROTOCOL
     Route: 065
     Dates: start: 20051216
  12. FUROSEMIDE [Concomitant]
     Dates: start: 20051107
  13. INSULIN [Concomitant]
     Indication: DIABETES MELLITUS
     Dates: start: 20051107
  14. PANTOPRAZOL [Concomitant]
     Indication: PROPHYLAXIS AGAINST GASTROINTESTINAL ULCER
     Dates: start: 20051107
  15. MEROPENEM [Concomitant]
     Indication: PNEUMONIA
     Dates: start: 20051114
  16. LINEZOLID [Concomitant]
     Indication: PNEUMONIA
     Dates: start: 20051114
  17. VORICONAZOL [Concomitant]
     Indication: PNEUMONIA
     Dates: start: 20051114

REACTIONS (1)
  - BRONCHOPULMONARY ASPERGILLOSIS [None]
